FAERS Safety Report 8201460-0 (Version None)
Quarter: 2012Q1

REPORT INFORMATION
  Report Type: 
  Country: None (occurrence: None)
  Receive Date: 20120312
  Receipt Date: 20120308
  Transmission Date: 20120608
  Serious: Yes (Death)
  Sender: FDA-Public Use
  Company Number: US-ACTELION-A-US2012-61632

PATIENT

DRUGS (1)
  1. VENTAVIS [Suspect]
     Indication: PULMONARY ARTERIAL HYPERTENSION
     Dosage: 20 UNK, UNK
     Route: 055
     Dates: start: 20100301, end: 20120111

REACTIONS (3)
  - PULMONARY HYPERTENSION [None]
  - PNEUMONIA [None]
  - CARDIAC FAILURE CONGESTIVE [None]
